FAERS Safety Report 8933010 (Version 1)
Quarter: 2012Q4

REPORT INFORMATION
  Report Type: 
  Country: MX (occurrence: MX)
  Receive Date: 20121129
  Receipt Date: 20121129
  Transmission Date: 20130627
  Serious: Yes (Disabling)
  Sender: FDA-Public Use
  Company Number: MX-009507513-1211MEX006214

PATIENT
  Age: 22 Year
  Sex: Female

DRUGS (2)
  1. IMPLANON [Suspect]
     Indication: CONTRACEPTION
     Dosage: 1 DF, UNK
     Route: 059
     Dates: start: 20121023
  2. IMPLANON [Suspect]
     Dosage: 1 UNK, UNK
     Route: 059
     Dates: start: 20121023

REACTIONS (5)
  - Pain [Unknown]
  - Wrong technique in drug usage process [Unknown]
  - Overdose [Unknown]
  - Device difficult to use [Unknown]
  - Medical device complication [Unknown]
